FAERS Safety Report 16730017 (Version 1)
Quarter: 2019Q3

REPORT INFORMATION
  Report Type: Spontaneous
  Country: US (occurrence: US)
  Receive Date: 20190722
  Receipt Date: 20190722
  Transmission Date: 20191005
  Serious: No
  Sender: FDA-Public Use
  Company Number: None

PATIENT
  Age: 11 Year
  Sex: Male

DRUGS (1)
  1. HEPARIN L/L FLUSH SYRINGE 100U/ML MEDEFIL, INC [Suspect]
     Active Substance: HEPARIN SODIUM
     Indication: MUCOPOLYSACCHARIDOSIS
     Dosage: ?          OTHER STRENGTH:100U/ML;OTHER DOSE:100 UNITS/ML;?
     Route: 042
     Dates: start: 20190617

REACTIONS (2)
  - Product dispensing error [None]
  - Incorrect dose administered [None]

NARRATIVE: CASE EVENT DATE: 20190711
